FAERS Safety Report 6892355-3 (Version None)
Quarter: 2010Q3

REPORT INFORMATION
  Report Type: 
  Country: None (occurrence: None)
  Receive Date: 20100731
  Receipt Date: 20080417
  Transmission Date: 20110219
  Serious: No
  Sender: FDA-Public Use
  Company Number: US-PFIZER INC-2008034131

PATIENT
  Sex: Male
  Weight: 72.7 kg

DRUGS (3)
  1. AMLODIPINE [Suspect]
     Indication: HYPERTENSION
     Route: 048
     Dates: start: 20070401, end: 20070401
  2. OMEGA-3 TRIGLYCERIDES [Suspect]
     Dosage: EVERY DAY
     Route: 048
  3. LIPITOR [Concomitant]
     Route: 048
     Dates: start: 20060101

REACTIONS (1)
  - RASH GENERALISED [None]
